FAERS Safety Report 4997361-1 (Version None)
Quarter: 2006Q1

REPORT INFORMATION
  Report Type: 
  Country: None (occurrence: None)
  Receive Date: 20060315
  Receipt Date: 20051226
  Transmission Date: 20060701
  Serious: Yes (Other)
  Sender: FDA-Public Use
  Company Number: 424655

PATIENT
  Age: 54 Year
  Sex: Female

DRUGS (3)
  1. BONIVA [Suspect]
     Indication: DRUG USE FOR UNKNOWN INDICATION
     Dosage: ORAL
     Route: 048
  2. ASPIRIN [Concomitant]
  3. VITAMIN E (ALPHA-TOCOPHEROL) [Concomitant]

REACTIONS (4)
  - INFLUENZA LIKE ILLNESS [None]
  - PRURITUS [None]
  - ROSACEA [None]
  - URTICARIA [None]
